FAERS Safety Report 24178724 (Version 3)
Quarter: 2024Q3

REPORT INFORMATION
  Report Type: Spontaneous
  Country: JP (occurrence: JP)
  Receive Date: 20240806
  Receipt Date: 20240911
  Transmission Date: 20241017
  Serious: Yes (Hospitalization, Other)
  Sender: PFIZER
  Company Number: JP-PFIZER INC-PV202400092598

PATIENT
  Age: 69 Year
  Sex: Female
  Weight: 38 kg

DRUGS (4)
  1. ELREXFIO [Suspect]
     Active Substance: ELRANATAMAB-BCMM
     Indication: Plasma cell myeloma
     Dosage: 12 MG, 1X/DAY
     Route: 058
     Dates: start: 20240709, end: 20240709
  2. ELREXFIO [Suspect]
     Active Substance: ELRANATAMAB-BCMM
     Dosage: 32 MG, 1X/DAY
     Route: 058
     Dates: start: 20240719, end: 20240719
  3. ELREXFIO [Suspect]
     Active Substance: ELRANATAMAB-BCMM
     Dosage: 76 MG, 1X/DAY
     Route: 058
     Dates: start: 20240723, end: 20240723
  4. ELREXFIO [Suspect]
     Active Substance: ELRANATAMAB-BCMM
     Dosage: 76 MG
     Dates: start: 20240806, end: 20240806

REACTIONS (5)
  - Cytokine release syndrome [Recovered/Resolved]
  - COVID-19 [Recovered/Resolved]
  - Full blood count decreased [Unknown]
  - Red blood cell count decreased [Unknown]
  - Neoplasm progression [Unknown]

NARRATIVE: CASE EVENT DATE: 20240101
